FAERS Safety Report 25537165 (Version 1)
Quarter: 2025Q3

REPORT INFORMATION
  Report Type: Spontaneous
  Country: US (occurrence: US)
  Receive Date: 20250710
  Receipt Date: 20250710
  Transmission Date: 20251020
  Serious: No
  Sender: LUPIN
  Company Number: US-LUPIN PHARMACEUTICALS INC.-2025-05914

PATIENT
  Age: 96 Year
  Weight: 41.723 kg

DRUGS (2)
  1. ALBUTEROL SULFATE [Suspect]
     Active Substance: ALBUTEROL SULFATE
     Indication: Product used for unknown indication
  2. SYMBICORT [Concomitant]
     Active Substance: BUDESONIDE\FORMOTEROL FUMARATE DIHYDRATE
     Indication: Product used for unknown indication
     Dosage: UNK, BID
     Route: 065

REACTIONS (5)
  - Wrong technique in product usage process [Unknown]
  - Device delivery system issue [Unknown]
  - Device occlusion [Unknown]
  - Device deposit issue [Unknown]
  - No adverse event [Unknown]
